FAERS Safety Report 5308901-7 (Version None)
Quarter: 2007Q2

REPORT INFORMATION
  Report Type: 
  Country: None (occurrence: None)
  Receive Date: 20070426
  Receipt Date: 20070418
  Transmission Date: 20071010
  Serious: Yes (Other)
  Sender: FDA-Public Use
  Company Number: US-PFIZER INC-2005132536

PATIENT
  Age: 87 Year
  Sex: Female
  Weight: 45.4 kg

DRUGS (6)
  1. ZOLOFT [Suspect]
     Indication: DEPRESSION
     Dosage: DAILY DOSE:10MG
     Dates: start: 20050705, end: 20050801
  2. ZOLOFT [Suspect]
     Indication: METABOLIC DISORDER
  3. INDERAL [Concomitant]
     Route: 065
  4. AMBIEN [Concomitant]
     Route: 065
  5. CALTRATE [Concomitant]
     Route: 065
  6. KAOPECTATE [Concomitant]
     Route: 065

REACTIONS (8)
  - ASTHENIA [None]
  - BLINDNESS [None]
  - FEELING ABNORMAL [None]
  - HYPERHIDROSIS [None]
  - IRRITABILITY [None]
  - PRURITUS [None]
  - SLEEP DISORDER [None]
  - WEIGHT DECREASED [None]
